FAERS Safety Report 9629939 (Version 1)
Quarter: 2013Q4

REPORT INFORMATION
  Report Type: Spontaneous
  Country: DE (occurrence: DE)
  Receive Date: 20131017
  Receipt Date: 20131017
  Transmission Date: 20140711
  Serious: Yes (Death, Hospitalization, Disabling, Congenital Anomaly, Other)
  Sender: FDA-Public Use
  Company Number: DE-TEVA-437661GER

PATIENT
  Age: 1 Day
  Sex: Male

DRUGS (2)
  1. CITALOPRAM [Suspect]
     Route: 064
  2. FOLIO [Concomitant]
     Route: 064

REACTIONS (6)
  - Holoprosencephaly [Fatal]
  - Congenital central nervous system anomaly [Not Recovered/Not Resolved]
  - Cleft lip and palate [Unknown]
  - Convulsion neonatal [Not Recovered/Not Resolved]
  - Temperature regulation disorder [Recovered/Resolved]
  - Hyperbilirubinaemia neonatal [Recovered/Resolved]
